FAERS Safety Report 23755618 (Version 1)
Quarter: 2024Q2

REPORT INFORMATION
  Report Type: Spontaneous
  Country: RO (occurrence: RO)
  Receive Date: 20240418
  Receipt Date: 20240418
  Transmission Date: 20240716
  Serious: Yes (Other)
  Sender: FDA-Public Use
  Company Number: RO-CHEPLA-2024004643

PATIENT
  Age: 20 Year
  Sex: Female

DRUGS (24)
  1. QUETIAPINE [Suspect]
     Active Substance: QUETIAPINE
     Indication: Suicide attempt
  2. CLONAZEPAM [Suspect]
     Active Substance: CLONAZEPAM
     Indication: Psychotic symptom
     Dosage: 2MG (1/2?TABLET/DAY)
  3. CLONAZEPAM [Suspect]
     Active Substance: CLONAZEPAM
     Indication: Suicide attempt
     Dosage: 2MG (1/2?TABLET/DAY)
  4. CLONAZEPAM [Suspect]
     Active Substance: CLONAZEPAM
     Indication: Psychotic symptom
     Dosage: DAILY DOSE: 1 DOSAGE FORM
  5. CLONAZEPAM [Suspect]
     Active Substance: CLONAZEPAM
     Indication: Suicide attempt
     Dosage: DAILY DOSE: 1 DOSAGE FORM
  6. OLANZAPINE [Suspect]
     Active Substance: OLANZAPINE
     Indication: Psychotic symptom
     Dosage: DAILY DOSE: 5 MILLIGRAM
  7. OLANZAPINE [Suspect]
     Active Substance: OLANZAPINE
     Indication: Psychotic symptom
     Dosage: GRADUALLY INCREASING THE?DOSE ?DAILY DOSE: 15 MILLIGRAM
  8. OLANZAPINE [Suspect]
     Active Substance: OLANZAPINE
     Indication: Psychotic symptom
     Dosage: OLANZAPINE GRADUALLY DECREASED
  9. OLANZAPINE [Suspect]
     Active Substance: OLANZAPINE
     Indication: Psychotic symptom
     Dosage: 1?TABLET/DAY FOR A WEEK?DAILY DOSE: 1 DOSAGE FORM
  10. DIAZEPAM [Suspect]
     Active Substance: DIAZEPAM
  11. RISPERIDONE [Suspect]
     Active Substance: RISPERIDONE
     Dosage: 1MG/ML (2ML/DAY)?DAILY DOSE: 2 MILLILITRE
  12. RISPERIDONE [Suspect]
     Active Substance: RISPERIDONE
     Dosage: 1MG/ML (6ML/DAY)?DAILY DOSE: 6 MILLILITRE
  13. VALPROIC ACID [Suspect]
     Active Substance: VALPROIC ACID
     Dosage: (3 TABLETS/DAY)?DAILY DOSE: 3 DOSAGE FORM
  14. VALPROIC ACID [Suspect]
     Active Substance: VALPROIC ACID
     Dosage: GRADUALLY REACHING?DAILY DOSE: 5 MILLILITRE
  15. VALPROIC ACID [Suspect]
     Active Substance: VALPROIC ACID
     Dosage: FOUR TABLETS/DAY ?DAILY DOSE: 4 DOSAGE FORM
  16. TRIHEXYPHENIDYL [Suspect]
     Active Substance: TRIHEXYPHENIDYL
     Dosage: DAILY DOSE: 1 DOSAGE FORM
  17. TRAZODONE [Suspect]
     Active Substance: TRAZODONE HYDROCHLORIDE
     Dosage: DAILY DOSE: 1 DOSAGE FORM
  18. CLOMIPRAMINE [Concomitant]
     Active Substance: CLOMIPRAMINE
     Indication: Depression
     Dosage: DAILY DOSE: 1 DOSAGE FORM
  19. CLOMIPRAMINE [Concomitant]
     Active Substance: CLOMIPRAMINE
     Indication: Depression
     Dosage: 3 TABLETS/DAY?DAILY DOSE: 3 DOSAGE FORM
  20. VORTIOXETINE [Concomitant]
     Active Substance: VORTIOXETINE
     Dosage: DAILY DOSE: 1 DOSAGE FORM
  21. VORTIOXETINE [Concomitant]
     Active Substance: VORTIOXETINE
     Dosage: DAILY DOSE: 2 DOSAGE FORM
  22. CLOZAPINE [Concomitant]
     Active Substance: CLOZAPINE
     Dosage: DAILY DOSE: 1 DOSAGE FORM
  23. CARIPRAZINE [Concomitant]
     Active Substance: CARIPRAZINE
     Dosage: STRENGTH:1.5MG ?DAILY DOSE: 1 DOSAGE FORM
  24. CARIPRAZINE [Concomitant]
     Active Substance: CARIPRAZINE
     Dosage: STRENGTH:6MG?DAILY DOSE: 1 DOSAGE FORM

REACTIONS (3)
  - Suicide attempt [Unknown]
  - Toxicity to various agents [Unknown]
  - Drug ineffective [Unknown]
